FAERS Safety Report 15550727 (Version 1)
Quarter: 2018Q4

REPORT INFORMATION
  Report Type: Spontaneous
  Country: US (occurrence: US)
  Receive Date: 20181025
  Receipt Date: 20181025
  Transmission Date: 20190205
  Serious: No
  Sender: FDA-Public Use
  Company Number: US-SA-2018SA294594

PATIENT
  Age: 50 Year
  Sex: Female

DRUGS (2)
  1. TOUJEO [Suspect]
     Active Substance: INSULIN GLARGINE
  2. TOUJEO [Suspect]
     Active Substance: INSULIN GLARGINE
     Dosage: 144 U, QD
     Dates: start: 20181022

REACTIONS (1)
  - Blood glucose increased [Unknown]
